FAERS Safety Report 16039755 (Version 1)
Quarter: 2019Q1

REPORT INFORMATION
  Report Type: Report from Study
  Country: US (occurrence: FR)
  Receive Date: 20190306
  Receipt Date: 20190306
  Transmission Date: 20190418
  Serious: Yes (Hospitalization)
  Sender: FDA-Public Use
  Company Number: FR-BRECKENRIDGE PHARMACEUTICAL, INC.-2063610

PATIENT
  Age: 13 Year
  Sex: Female

DRUGS (2)
  1. RISPERIDONE. [Concomitant]
     Active Substance: RISPERIDONE
  2. CLOBAZAM. [Suspect]
     Active Substance: CLOBAZAM

REACTIONS (1)
  - Drug reaction with eosinophilia and systemic symptoms [None]
